FAERS Safety Report 10364512 (Version 2)
Quarter: 2014Q3

REPORT INFORMATION
  Report Type: Spontaneous
  Country: IT (occurrence: IT)
  Receive Date: 20140806
  Receipt Date: 20140806
  Transmission Date: 20150326
  Serious: Yes (Hospitalization)
  Sender: FDA-Public Use
  Company Number: IT-TEVA-496541ISR

PATIENT
  Age: 80 Year
  Sex: Male

DRUGS (6)
  1. MYOCET [Suspect]
     Active Substance: DOXORUBICIN
     Indication: B-CELL LYMPHOMA
     Dosage: 88.5 MILLIGRAM DAILY;
     Route: 042
     Dates: start: 20140620, end: 20140620
  2. NAVOBAN [Concomitant]
     Active Substance: TROPISETRON HYDROCHLORIDE
     Indication: B-CELL LYMPHOMA
     Dosage: 5 MILLIGRAM DAILY;
     Route: 042
  3. CICLOFOSFAMIDE [Concomitant]
     Active Substance: CYCLOPHOSPHAMIDE
     Indication: B-CELL LYMPHOMA
     Dosage: 1328 MILLIGRAM DAILY;
     Route: 042
  4. MABTHERA [Concomitant]
     Active Substance: RITUXIMAB
     Indication: B-CELL LYMPHOMA
     Route: 042
  5. VINCRISTINE [Suspect]
     Active Substance: VINCRISTINE
     Indication: PRODUCT USED FOR UNKNOWN INDICATION
     Dosage: 1.5 MILLIGRAM DAILY;
     Route: 042
     Dates: start: 20140620, end: 20140620
  6. SOLU-MEDROL [Concomitant]
     Active Substance: METHYLPREDNISOLONE SODIUM SUCCINATE
     Indication: B-CELL LYMPHOMA
     Dosage: 56.64 MILLIGRAM DAILY;
     Route: 042

REACTIONS (3)
  - Injection site necrosis [Not Recovered/Not Resolved]
  - Extravasation [Recovered/Resolved with Sequelae]
  - Infection [Not Recovered/Not Resolved]

NARRATIVE: CASE EVENT DATE: 20140620
